FAERS Safety Report 25244797 (Version 1)
Quarter: 2025Q2

REPORT INFORMATION
  Report Type: Spontaneous
  Country: US (occurrence: US)
  Receive Date: 20250428
  Receipt Date: 20250428
  Transmission Date: 20250716
  Serious: No
  Sender: AMARIN
  Company Number: US-Amarin Pharma  Inc-2025AMR000127

PATIENT
  Age: 70 Year
  Sex: Female

DRUGS (2)
  1. VASCEPA [Suspect]
     Active Substance: ICOSAPENT ETHYL
     Indication: Blood triglycerides
     Dates: start: 2019, end: 202501
  2. VASCEPA [Suspect]
     Active Substance: ICOSAPENT ETHYL
     Indication: Eye disorder

REACTIONS (6)
  - Vomiting [Unknown]
  - Therapy interrupted [Unknown]
  - Off label use [Unknown]
  - Poor quality product administered [Unknown]
  - Wrong technique in product usage process [Unknown]
  - Product odour abnormal [Unknown]

NARRATIVE: CASE EVENT DATE: 20190101
